FAERS Safety Report 13973955 (Version 3)
Quarter: 2017Q4

REPORT INFORMATION
  Report Type: Spontaneous
  Country: GB (occurrence: GB)
  Receive Date: 20170915
  Receipt Date: 20171019
  Transmission Date: 20180321
  Serious: Yes (Hospitalization)
  Sender: FDA-Public Use
  Company Number: GB-PFIZER INC-2017394009

PATIENT
  Age: 43 Year
  Sex: Female

DRUGS (1)
  1. GENOTROPIN [Suspect]
     Active Substance: SOMATROPIN
     Dosage: 0.3 MG, 1X/DAY
     Route: 058
     Dates: start: 201706

REACTIONS (2)
  - Myasthenia gravis [Not Recovered/Not Resolved]
  - Disease recurrence [Not Recovered/Not Resolved]
